FAERS Safety Report 21411021 (Version 1)
Quarter: 2022Q4

REPORT INFORMATION
  Report Type: Spontaneous
  Country: CN (occurrence: CN)
  Receive Date: 20221005
  Receipt Date: 20221005
  Transmission Date: 20230112
  Serious: Yes (Other)
  Sender: FDA-Public Use
  Company Number: CN-PFIZER INC-PV202200070300

PATIENT
  Age: 61 Year
  Sex: Female
  Weight: 51.5 kg

DRUGS (13)
  1. LINEZOLID [Suspect]
     Active Substance: LINEZOLID
     Indication: Pneumonitis
     Dosage: 0.6 G, 2X/DAY
     Route: 041
     Dates: start: 20161109, end: 20161113
  2. PIPERACILLIN AND TAZOBACTAM [Concomitant]
     Active Substance: PIPERACILLIN SODIUM\TAZOBACTAM SODIUM
     Indication: Anti-infective therapy
     Dosage: 3 G, 2X/DAY
     Route: 041
  3. PIPERACILLIN AND TAZOBACTAM [Concomitant]
     Active Substance: PIPERACILLIN SODIUM\TAZOBACTAM SODIUM
     Indication: Pneumonitis
     Dosage: 3 G, 3X/DAY
     Route: 041
     Dates: end: 20161118
  4. AMBROXOL HYDROCHLORIDE [Concomitant]
     Active Substance: AMBROXOL HYDROCHLORIDE
     Indication: Productive cough
     Dosage: 30 MG, 2X/DAY
     Route: 040
     Dates: start: 201611
  5. MANNITOL [Concomitant]
     Active Substance: MANNITOL
     Indication: Dehydration
     Dosage: 125 ML, 3X/DAY
     Route: 041
     Dates: start: 201611
  6. MANNITOL [Concomitant]
     Active Substance: MANNITOL
     Indication: Intracranial pressure increased
  7. OMEPRAZOLE [Concomitant]
     Active Substance: OMEPRAZOLE
     Indication: Prophylaxis
     Dosage: 40 MG, 1X/DAY
     Route: 041
     Dates: end: 20161111
  8. GANGLIOSIDE GM1 [Concomitant]
     Active Substance: GANGLIOSIDE GM1
     Indication: Therapeutic procedure
     Dosage: 40 MG, 1X/DAY
     Route: 041
     Dates: start: 201611
  9. FAT EMULSION NOS [Concomitant]
     Active Substance: EGG PHOSPHOLIPIDS\SAFFLOWER OIL\SOYBEAN OIL
     Indication: Therapeutic procedure
     Dosage: 250 ML, 1X/DAY
     Route: 041
     Dates: start: 201611
  10. AMINO ACIDS, SOURCE UNSPECIFIED [Concomitant]
     Active Substance: AMINO ACIDS, SOURCE UNSPECIFIED
     Indication: Therapeutic procedure
     Dosage: 500 ML, 1X/DAY
     Route: 041
     Dates: start: 201611
  11. ALANYL GLUTAMINE [Concomitant]
     Active Substance: ALANYL GLUTAMINE
     Indication: Therapeutic procedure
     Dosage: 10 G, 1X/DAY
     Route: 041
     Dates: start: 201611
  12. POTASSIUM CHLORIDE [Concomitant]
     Active Substance: POTASSIUM CHLORIDE
     Indication: Therapeutic procedure
     Dosage: 20 ML, 1X/DAY
     Route: 041
     Dates: start: 201611
  13. VITAMINS [Concomitant]
     Active Substance: VITAMINS
     Indication: Therapeutic procedure
     Dosage: 1 VIAL
     Route: 041
     Dates: start: 201611

REACTIONS (1)
  - Drug-induced liver injury [Recovered/Resolved]

NARRATIVE: CASE EVENT DATE: 20161110
